FAERS Safety Report 8597285 (Version 2)
Quarter: 2013Q3

REPORT INFORMATION
  Report Type: Spontaneous
  Country: FR (occurrence: FR)
  Receive Date: 20120605
  Receipt Date: 20130918
  Transmission Date: 20140515
  Serious: Yes (Hospitalization)
  Sender: FDA-Public Use
  Company Number: FR-PFIZER INC-2012130715

PATIENT
  Age: 76 Year
  Sex: Male

DRUGS (11)
  1. TAZOCILLINE [Suspect]
     Indication: ANTIBIOTIC THERAPY
     Dosage: UNK
     Route: 042
     Dates: start: 20120325, end: 20120328
  2. TAZOCILLINE [Suspect]
     Dosage: UNK
     Route: 042
     Dates: start: 20120409, end: 20120410
  3. CIFLOX [Suspect]
     Indication: ANTIBIOTIC THERAPY
     Dosage: UNK
     Route: 042
     Dates: start: 20120325, end: 20120328
  4. CIFLOX [Suspect]
     Dosage: UNK
     Route: 042
     Dates: start: 20120409, end: 20120410
  5. ZYVOXID [Concomitant]
  6. AMIKACIN [Concomitant]
     Indication: ANTIBIOTIC THERAPY
     Route: 042
  7. TRIFLUCAN [Concomitant]
     Indication: ANTIBIOTIC THERAPY
     Dosage: UNK
     Route: 042
  8. VANCOMYCIN [Concomitant]
     Indication: ANTIBIOTIC THERAPY
     Route: 042
  9. ERYTHROMYCIN [Concomitant]
     Indication: ANTIBIOTIC THERAPY
     Route: 042
  10. HYPNOVEL [Concomitant]
     Indication: SEDATION
  11. SUFENTANIL [Concomitant]
     Indication: SEDATION

REACTIONS (1)
  - Drug reaction with eosinophilia and systemic symptoms [Recovered/Resolved]
